FAERS Safety Report 6154686-4 (Version None)
Quarter: 2009Q2

REPORT INFORMATION
  Report Type: 
  Country: None (occurrence: None)
  Receive Date: 20090414
  Receipt Date: 20090407
  Transmission Date: 20091009
  Serious: Yes (Hospitalization)
  Sender: FDA-Public Use
  Company Number: A0718395A

PATIENT
  Sex: Female

DRUGS (1)
  1. AVANDIA [Suspect]
     Indication: TYPE 2 DIABETES MELLITUS
     Dosage: 8MG PER DAY
     Route: 065
     Dates: end: 20070601

REACTIONS (15)
  - ACUTE MYOCARDIAL INFARCTION [None]
  - ACUTE PULMONARY OEDEMA [None]
  - AGITATION [None]
  - CORONARY ARTERY OCCLUSION [None]
  - DEPRESSION [None]
  - EMOTIONAL DISTRESS [None]
  - FEAR [None]
  - HEART INJURY [None]
  - HEPATIC FAILURE [None]
  - HYPOVENTILATION [None]
  - INJURY [None]
  - LIVER INJURY [None]
  - MYOCARDIAL INFARCTION [None]
  - MYOCARDIAL ISCHAEMIA [None]
  - TREATMENT NONCOMPLIANCE [None]
